FAERS Safety Report 6371620-2 (Version None)
Quarter: 2009Q3

REPORT INFORMATION
  Report Type: 
  Country: None (occurrence: None)
  Receive Date: 20090923
  Receipt Date: 20080410
  Transmission Date: 20100115
  Serious: No
  Sender: FDA-Public Use
  Company Number: US-ASTRAZENECA-2008UW01153

PATIENT
  Age: 340 Month
  Sex: Female
  Weight: 90.7 kg

DRUGS (25)
  1. SEROQUEL [Suspect]
     Indication: ANXIETY
     Dosage: 25-200 MG
     Route: 048
     Dates: start: 20010101, end: 20061201
  2. SEROQUEL [Suspect]
     Indication: DEPRESSION
     Dosage: 25-200 MG
     Route: 048
     Dates: start: 20010101, end: 20061201
  3. SEROQUEL [Suspect]
     Indication: INSOMNIA
     Dosage: 25-200 MG
     Route: 048
     Dates: start: 20010101, end: 20061201
  4. CLONAZEPAM [Concomitant]
  5. MYCELEX [Concomitant]
  6. LEVOTHYROXINE SODIUM [Concomitant]
  7. STARLIX [Concomitant]
  8. TRAZODONE [Concomitant]
  9. LEXAPRO [Concomitant]
  10. NOVOLIN R [Concomitant]
  11. LANTUS [Concomitant]
  12. TOPAMAX [Concomitant]
  13. FLUOXETINE [Concomitant]
  14. WELLBUTRIN [Concomitant]
  15. LEVAQUIN [Concomitant]
  16. ULTRACET [Concomitant]
  17. EFFEXOR [Concomitant]
  18. FUROSEMIDE [Concomitant]
  19. PAROXETINE HCL [Concomitant]
  20. CIPROFLAXACIN [Concomitant]
  21. ZELNORM [Concomitant]
  22. DOXYCYCLINE [Concomitant]
  23. FLUCONAZOLE [Concomitant]
  24. RANITIDINE [Concomitant]
  25. CYCLOBENZAPRINE [Concomitant]

REACTIONS (2)
  - DIABETES MELLITUS [None]
  - TYPE 1 DIABETES MELLITUS [None]
